FAERS Safety Report 6571470-8 (Version None)
Quarter: 2010Q1

REPORT INFORMATION
  Report Type: 
  Country: None (occurrence: None)
  Receive Date: 20100205
  Receipt Date: 20100125
  Transmission Date: 20100710
  Serious: Yes (Hospitalization)
  Sender: FDA-Public Use
  Company Number: KR-JNJFOC-20100111859

PATIENT
  Sex: Female
  Weight: 60 kg

DRUGS (24)
  1. GOLIMUMAB [Suspect]
     Indication: RHEUMATOID ARTHRITIS
     Route: 058
  2. GOLIMUMAB [Suspect]
     Route: 058
  3. METHOTREXATE [Suspect]
     Indication: RHEUMATOID ARTHRITIS
     Route: 048
  4. METHOTREXATE [Suspect]
     Route: 048
  5. METHOTREXATE [Suspect]
     Route: 048
  6. METHOTREXATE [Suspect]
     Route: 048
  7. METHOTREXATE [Suspect]
     Route: 048
  8. METHOTREXATE [Suspect]
     Route: 048
  9. METHOTREXATE [Suspect]
     Route: 048
  10. METHOTREXATE [Suspect]
     Route: 048
  11. METHOTREXATE [Suspect]
     Route: 048
  12. METHOTREXATE [Suspect]
     Route: 048
  13. METHOTREXATE [Suspect]
     Route: 048
  14. METHYLPREDNISOLONE [Concomitant]
     Route: 048
  15. ADCAL [Concomitant]
     Route: 048
  16. EUPATILIN [Concomitant]
     Route: 048
  17. FOLIC ACID [Concomitant]
     Route: 048
  18. TANATRIL [Concomitant]
     Route: 048
  19. DICHLOZID [Concomitant]
     Route: 048
  20. ULTRACET [Concomitant]
     Route: 048
  21. METHOTREXATE [Concomitant]
     Route: 048
  22. ALL OTHER PRODUCTS [Concomitant]
     Route: 048
  23. DICLOFLEX PLASTER [Concomitant]
     Route: 061
  24. ANYDIPINE [Concomitant]
     Route: 048

REACTIONS (1)
  - PYELONEPHRITIS ACUTE [None]
